FAERS Safety Report 4726555-5 (Version None)
Quarter: 2005Q3

REPORT INFORMATION
  Report Type: 
  Country: None (occurrence: None)
  Receive Date: 20050725
  Receipt Date: 20050309
  Transmission Date: 20060218
  Serious: No
  Sender: FDA-Public Use
  Company Number: USA050392888

PATIENT
  Age: 7 Year
  Sex: Female

DRUGS (1)
  1. STRATTERA [Suspect]
     Indication: ATTENTION DEFICIT/HYPERACTIVITY DISORDER
     Dosage: 36 MG DAY
     Dates: start: 20030101, end: 20050101

REACTIONS (5)
  - DECREASED APPETITE [None]
  - FLUID INTAKE REDUCED [None]
  - HYPERPHAGIA [None]
  - POLLAKIURIA [None]
  - URINE ABNORMALITY [None]
